FAERS Safety Report 6851221-X (Version None)
Quarter: 2010Q3

REPORT INFORMATION
  Report Type: 
  Country: None (occurrence: None)
  Receive Date: 20100716
  Receipt Date: 20100712
  Transmission Date: 20110219
  Serious: Yes (Death, Hospitalization)
  Sender: FDA-Public Use
  Company Number: PHHY2010US46189

PATIENT
  Age: 45 Year
  Sex: Male

DRUGS (7)
  1. CICLOSPORIN [Suspect]
     Indication: RENAL AND PANCREAS TRANSPLANT
     Dosage: 150 MG, BID
     Route: 048
  2. PREDNISONE [Suspect]
     Indication: RENAL AND PANCREAS TRANSPLANT
     Dosage: 2.5 MG
     Route: 048
  3. MYCOPHENOLATE MOFETIL [Suspect]
     Indication: RENAL AND PANCREAS TRANSPLANT
     Dosage: 1000 MG, BID
     Route: 048
  4. METOPROLOL [Concomitant]
  5. ASPIRIN [Concomitant]
  6. TAMSULOSIN HCL [Concomitant]
  7. OMEPRAZOLE [Concomitant]
     Indication: HYPERTENSION

REACTIONS (20)
  - BLOOD PRESSURE INCREASED [None]
  - CLONUS [None]
  - CSF PROTEIN INCREASED [None]
  - DISORIENTATION [None]
  - ENCEPHALITIS [None]
  - ENDOTRACHEAL INTUBATION [None]
  - EPSTEIN-BARR VIRUS INFECTION [None]
  - MECHANICAL VENTILATION [None]
  - MENTAL STATUS CHANGES [None]
  - MUSCULOSKELETAL STIFFNESS [None]
  - NAUSEA [None]
  - NYSTAGMUS [None]
  - OXYGEN SATURATION DECREASED [None]
  - PHOTOPHOBIA [None]
  - PYREXIA [None]
  - TREMOR [None]
  - UNRESPONSIVE TO STIMULI [None]
  - VOMITING [None]
  - WEIGHT DECREASED [None]
  - WEST NILE VIRAL INFECTION [None]
